FAERS Safety Report 5573219-4 (Version None)
Quarter: 2007Q4

REPORT INFORMATION
  Report Type: 
  Country: None (occurrence: None)
  Receive Date: 20071220
  Receipt Date: 20071211
  Transmission Date: 20080405
  Serious: Yes (Hospitalization)
  Sender: FDA-Public Use
  Company Number: TCI2007A06314

PATIENT
  Age: 77 Year
  Sex: Male

DRUGS (3)
  1. LANSOPRAZOLE [Suspect]
     Indication: HELICOBACTER INFECTION
     Dosage: 60 MG (30  MG, 2 IN 1 D) PER ORAL
     Route: 048
     Dates: start: 20060829, end: 20060903
  2. AMOXICILLIN TRIHYDRATE [Suspect]
     Indication: HELICOBACTER INFECTION
     Dosage: 1500  MG (750 MG, 2 IN 1 D) PER ORAL
     Route: 048
     Dates: start: 20060829, end: 20060903
  3. BIAXIN [Suspect]
     Indication: HELICOBACTER INFECTION
     Dosage: 800 MG (400 MG, 2 IN 1 D) PER ORAL
     Route: 048
     Dates: start: 20060829, end: 20060903

REACTIONS (1)
  - PSEUDOMEMBRANOUS COLITIS [None]
